FAERS Safety Report 18582901 (Version 3)
Quarter: 2021Q3

REPORT INFORMATION
  Report Type: Report from Study
  Country: US (occurrence: US)
  Receive Date: 20201205
  Receipt Date: 20210708
  Transmission Date: 20211014
  Serious: No
  Sender: FDA-Public Use
  Company Number: NVSC2020US321871

PATIENT
  Sex: Male

DRUGS (1)
  1. ENTRESTO [Suspect]
     Active Substance: SACUBITRIL\VALSARTAN
     Indication: CARDIAC FAILURE
     Dosage: 100 MG (49/51 MG), BID
     Route: 048

REACTIONS (5)
  - Hypotension [Unknown]
  - Gout [Recovered/Resolved]
  - Heart rate increased [Unknown]
  - Weight increased [Unknown]
  - High density lipoprotein decreased [Unknown]
